FAERS Safety Report 20861562 (Version 11)
Quarter: 2025Q3

REPORT INFORMATION
  Report Type: Report from Study
  Country: CN (occurrence: CN)
  Receive Date: 20220523
  Receipt Date: 20250701
  Transmission Date: 20251020
  Serious: Yes (Other)
  Sender: TAKEDA
  Company Number: CN-TAKEDA-2022TUS031767

PATIENT
  Age: 81 Year
  Sex: Female
  Weight: 65 kg

DRUGS (10)
  1. IXAZOMIB [Suspect]
     Active Substance: IXAZOMIB
     Indication: Plasma cell myeloma
     Dosage: 4 MILLIGRAM, 1/WEEK
     Dates: start: 20220119, end: 20220202
  2. IXAZOMIB [Suspect]
     Active Substance: IXAZOMIB
     Dosage: 4 MILLIGRAM, QD
     Dates: start: 20220319, end: 20220319
  3. DEXAMETHASONE [Concomitant]
     Active Substance: DEXAMETHASONE
     Indication: Plasma cell myeloma
     Dates: start: 20220218, end: 20220218
  4. DEXAMETHASONE [Concomitant]
     Active Substance: DEXAMETHASONE
     Dosage: 10 MILLIGRAM, QD
     Dates: start: 20220319, end: 20220321
  5. IRBESARTAN [Concomitant]
     Active Substance: IRBESARTAN
     Indication: Hypertension
     Dosage: 162.5 MILLIGRAM, QD
     Dates: start: 20220218, end: 20220224
  6. ATORVASTATIN CALCIUM [Concomitant]
     Active Substance: ATORVASTATIN CALCIUM
     Indication: Dyslipidaemia
     Dates: start: 20220218, end: 20220224
  7. ATORVASTATIN CALCIUM [Concomitant]
     Active Substance: ATORVASTATIN CALCIUM
     Dates: start: 20220302, end: 20220405
  8. POLAPREZINC [Concomitant]
     Active Substance: POLAPREZINC
     Indication: Prophylaxis
     Dosage: 75 MILLIGRAM, QD
     Dates: start: 20220218, end: 20220304
  9. Hepatocyte Growth Promoting Factors [Concomitant]
     Indication: Prophylaxis
     Dosage: 100 MILLIGRAM, TID
     Dates: start: 20220218, end: 20220224
  10. EZETIMIBE [Concomitant]
     Active Substance: EZETIMIBE
     Indication: Dyslipidaemia
     Dosage: 10 MILLIGRAM, QD
     Dates: start: 20220302, end: 20220401

REACTIONS (7)
  - Hypokalaemia [Not Recovered/Not Resolved]
  - Diarrhoea [Recovered/Resolved]
  - Vomiting [Recovered/Resolved]
  - Malnutrition [Not Recovered/Not Resolved]
  - Hyponatraemia [Not Recovered/Not Resolved]
  - Off label use [Recovered/Resolved]
  - Bone pain [Not Recovered/Not Resolved]

NARRATIVE: CASE EVENT DATE: 20220218
